FAERS Safety Report 23699920 (Version 1)
Quarter: 2024Q2

REPORT INFORMATION
  Report Type: Spontaneous
  Country: JP (occurrence: JP)
  Receive Date: 20240403
  Receipt Date: 20240403
  Transmission Date: 20240715
  Serious: Yes (Other)
  Sender: FDA-Public Use
  Company Number: JP-SUN PHARMACEUTICAL INDUSTRIES LTD-2024RR-440342

PATIENT
  Age: 59 Year
  Sex: Female
  Weight: 39 kg

DRUGS (9)
  1. CARBOPLATIN [Suspect]
     Active Substance: CARBOPLATIN
     Indication: Lung adenocarcinoma
     Dosage: FOUR COURSES  OF TREATMENT WITH CARBOPLATIN AND DOCETAXEL
     Route: 065
  2. CARBOPLATIN [Suspect]
     Active Substance: CARBOPLATIN
     Dosage: TWO CYCLES OF COMBINED THERAPY CARBOPLATIN + PEMETREXED + IPILIMUMAB + NIVOLUMAB
  3. DOCETAXEL [Suspect]
     Active Substance: DOCETAXEL\DOCETAXEL ANHYDROUS
     Indication: Lung adenocarcinoma
     Dosage: FOUR COURSES  OF TREATMENT WITH CARBOPLATIN AND DOCETAXEL
     Route: 065
  4. DOCETAXEL [Suspect]
     Active Substance: DOCETAXEL\DOCETAXEL ANHYDROUS
     Dosage: TWO CYCLES OF COMBINED THERAPY CARBOPLATIN + PEMETREXED + IPILIMUMAB + NIVOLUMAB
     Route: 065
  5. PEMETREXED [Suspect]
     Active Substance: PEMETREXED
     Indication: Lung adenocarcinoma
     Dosage: UNK
     Route: 065
  6. IPILIMUMAB [Suspect]
     Active Substance: IPILIMUMAB
     Indication: Lung adenocarcinoma
     Dosage: TWO CYCLES OF COMBINED THERAPY CARBOPLATIN + PEMETREXED + IPILIMUMAB + NIVOLUMAB
     Route: 065
  7. IPILIMUMAB [Suspect]
     Active Substance: IPILIMUMAB
     Dosage: MAINTENANCE THERAPY WITH IPILIMUMAB + NIVOLUMAB
     Route: 065
  8. NIVOLUMAB [Suspect]
     Active Substance: NIVOLUMAB
     Indication: Lung adenocarcinoma
     Dosage: TWO CYCLES OF COMBINED THERAPY CARBOPLATIN + PEMETREXED + IPILIMUMAB + NIVOLUMAB
     Route: 065
  9. NIVOLUMAB [Suspect]
     Active Substance: NIVOLUMAB
     Dosage: MAINTENANCE THERAPY WITH IPILIMUMAB + NIVOLUMAB
     Route: 065

REACTIONS (3)
  - Disease recurrence [Unknown]
  - Chorioretinitis [Not Recovered/Not Resolved]
  - Optic neuritis [Not Recovered/Not Resolved]
